FAERS Safety Report 22248155 (Version 1)
Quarter: 2023Q2

REPORT INFORMATION
  Report Type: Report from Study
  Country: US (occurrence: US)
  Receive Date: 20230425
  Receipt Date: 20230425
  Transmission Date: 20230722
  Serious: Yes (Other)
  Sender: FDA-Public Use
  Company Number: US-ABBVIE-4739667

PATIENT
  Sex: Male

DRUGS (1)
  1. HUMIRA [Suspect]
     Active Substance: ADALIMUMAB
     Indication: Hidradenitis
     Dosage: 2 INJECTIONS EVERY 2 WEEKS
     Route: 058
     Dates: start: 20220824

REACTIONS (2)
  - Skin disorder [Not Recovered/Not Resolved]
  - Intentional product misuse [Unknown]
